FAERS Safety Report 4532145-X (Version None)
Quarter: 2004Q4

REPORT INFORMATION
  Report Type: 
  Country: None (occurrence: None)
  Receive Date: 20041217
  Receipt Date: 20041206
  Transmission Date: 20050328
  Serious: Yes (Other)
  Sender: FDA-Public Use
  Company Number: FR-2004-036108

PATIENT
  Age: 32 Year
  Sex: Female

DRUGS (1)
  1. JASMINE(DROSPIRENONE,  ETHINYLESTRADIOL) FILM TABLET [Suspect]
     Indication: ORAL CONTRACEPTION
     Dosage: 1 TAB(S), 21D/28D, ORAL
     Route: 048
     Dates: start: 20021009, end: 20040601

REACTIONS (2)
  - DRUG TOLERANCE DECREASED [None]
  - THROMBOCYTHAEMIA [None]
